FAERS Safety Report 6870784-1 (Version None)
Quarter: 2010Q3

REPORT INFORMATION
  Report Type: 
  Country: None (occurrence: None)
  Receive Date: 20100721
  Receipt Date: 20100702
  Transmission Date: 20110219
  Serious: Yes (Other)
  Sender: FDA-Public Use
  Company Number: RU-SOLVAY-00310004039

PATIENT
  Sex: Female

DRUGS (7)
  1. FLUVOXAMINE MALEATE [Suspect]
     Indication: PSYCHOSOMATIC DISEASE
     Dosage: 50 MILLIGRAM(S)
     Route: 048
     Dates: start: 20100511, end: 20100622
  2. CLONAZEPAM [Suspect]
     Indication: PSYCHOSOMATIC DISEASE
     Dosage: 0.25 DOSAGE FORM
     Route: 048
  3. THYROZOL (THIAMAZOLE) [Suspect]
     Indication: HYPERTHYROIDISM
     Dosage: 7.5 MILLIGRAM(S)
     Route: 048
  4. NOOTROPIL (PIRACETAM) [Concomitant]
  5. CINNARIZINE (CINNARIZINE) [Concomitant]
  6. CORDARONE [Concomitant]
  7. PREDNISOLONE [Concomitant]

REACTIONS (4)
  - BRADYCARDIA [None]
  - GLOMERULONEPHRITIS CHRONIC [None]
  - HEPATITIS TOXIC [None]
  - PLATELET COUNT DECREASED [None]
